FAERS Safety Report 4984471-8 (Version None)
Quarter: 2006Q2

REPORT INFORMATION
  Report Type: 
  Country: None (occurrence: None)
  Receive Date: 20060427
  Receipt Date: 20060413
  Transmission Date: 20061013
  Serious: Yes (Other)
  Sender: FDA-Public Use
  Company Number: JP-JPN-A200601227

PATIENT
  Age: 74 Year
  Sex: Female

DRUGS (12)
  1. VALTREX [Suspect]
     Indication: HERPES ZOSTER
     Dosage: 1000MG THREE TIMES PER DAY
     Route: 048
     Dates: start: 20060403, end: 20060413
  2. NORVASC [Concomitant]
     Route: 048
  3. LIPOVAS [Concomitant]
     Route: 048
  4. ACECOL [Concomitant]
     Route: 048
  5. VOLTAREN [Concomitant]
     Route: 065
  6. BUP-4 [Concomitant]
     Route: 048
  7. MEXITIL [Concomitant]
     Route: 065
  8. FLUITRAN [Concomitant]
     Route: 048
  9. PANALDINE [Concomitant]
     Route: 048
  10. ARTIST [Concomitant]
     Route: 048
  11. LASIX [Concomitant]
     Route: 065
  12. TEGRETOL [Concomitant]
     Route: 048

REACTIONS (3)
  - APATHY [None]
  - DEPRESSED LEVEL OF CONSCIOUSNESS [None]
  - DYSARTHRIA [None]
